FAERS Safety Report 7216853-8 (Version None)
Quarter: 2011Q1

REPORT INFORMATION
  Report Type: 
  Country: None (occurrence: None)
  Receive Date: 20110104
  Receipt Date: 20110104
  Transmission Date: 20110831
  Serious: Yes (Other)
  Sender: FDA-Public Use
  Company Number: None

PATIENT
  Sex: Female
  Weight: 73.9363 kg

DRUGS (2)
  1. METFORMIN HCL [Suspect]
  2. METFORMIN HCL [Suspect]
     Indication: TYPE 2 DIABETES MELLITUS
     Dosage: 500 MG BID PO
     Route: 048
     Dates: start: 20101227, end: 20101230

REACTIONS (4)
  - VOMITING [None]
  - ABDOMINAL PAIN [None]
  - PRODUCT SUBSTITUTION ISSUE [None]
  - NAUSEA [None]
